FAERS Safety Report 6422719-3 (Version None)
Quarter: 2009Q4

REPORT INFORMATION
  Report Type: 
  Country: None (occurrence: None)
  Receive Date: 20091102
  Receipt Date: 20091027
  Transmission Date: 20100525
  Serious: Yes (Death, Hospitalization, Other)
  Sender: FDA-Public Use
  Company Number: JP-JNJFOC-20090905127

PATIENT
  Age: 80 Year
  Sex: Male

DRUGS (7)
  1. RISPERDAL [Suspect]
     Indication: RESTLESSNESS
     Route: 048
     Dates: start: 20090903, end: 20090907
  2. RISPERDAL [Suspect]
     Indication: DRUG USE FOR UNKNOWN INDICATION
     Route: 048
     Dates: start: 20090903, end: 20090907
  3. SEPAZON [Suspect]
     Indication: DRUG USE FOR UNKNOWN INDICATION
     Route: 048
     Dates: start: 20090903, end: 20090907
  4. LENDORMIN [Suspect]
     Indication: DRUG USE FOR UNKNOWN INDICATION
     Route: 065
     Dates: start: 20090903, end: 20090907
  5. OXINORM [Concomitant]
     Indication: CANCER PAIN
     Route: 048
  6. GABAPEN [Concomitant]
     Route: 048
  7. SEROQUEL [Concomitant]
     Route: 048

REACTIONS (4)
  - BLOOD CREATININE ABNORMAL [None]
  - BLOOD POTASSIUM INCREASED [None]
  - INAPPROPRIATE ANTIDIURETIC HORMONE SECRETION [None]
  - MALIGNANT NEOPLASM PROGRESSION [None]
